FAERS Safety Report 6705784 (Version 3)
Quarter: 2013Q1

REPORT INFORMATION
  Report Type: Spontaneous
  Country: GB (occurrence: None)
  Receive Date: 20080709
  Receipt Date: 20121204
  Transmission Date: 20140127
  Serious: Yes (Other)
  Sender: FDA-Public Use
  Company Number: 2008AP001621

PATIENT
  Sex: Male

DRUGS (7)
  1. PAROXETINE HYDROCHLORIDE [Suspect]
     Dosage: 20 MG; QD
     Dates: start: 199902, end: 2003
  2. CARBAMAZEPINE [Concomitant]
  3. DIAZEPAM (DIAZEPAM) [Concomitant]
  4. PHENYTOIN SODIUM [Concomitant]
  5. ESCITALOPRAM OXALATE [Concomitant]
  6. TRAMADOL HYDROCHLORIDE [Concomitant]
  7. VENLAFAXINE [Concomitant]

REACTIONS (18)
  - ANGER [None]
  - DISTURBANCE IN ATTENTION [None]
  - DEHYDRATION [None]
  - DISSOCIATION [None]
  - MEMORY IMPAIRMENT [None]
  - NAUSEA [None]
  - TINNITUS [None]
  - SUICIDAL IDEATION [None]
  - BRUXISM [None]
  - ABNORMAL DREAMS [None]
  - DRUG WITHDRAWAL SYNDROME [None]
  - MELAENA [None]
  - MOOD SWINGS [None]
  - PANIC ATTACK [None]
  - RECTAL HAEMORRHAGE [None]
  - OVERDOSE [None]
  - MUSCLE TWITCHING [None]
  - FALL [None]
